FAERS Safety Report 7506302-4 (Version None)
Quarter: 2011Q2

REPORT INFORMATION
  Report Type: 
  Country: None (occurrence: None)
  Receive Date: 20110520
  Receipt Date: 20110517
  Transmission Date: 20111010
  Serious: Yes (Other)
  Sender: FDA-Public Use
  Company Number: 2011-00377

PATIENT
  Age: 47 Year
  Sex: Female
  Weight: 74.8435 kg

DRUGS (11)
  1. MULTI-VITAMIN [Concomitant]
  2. MAGNESIUM SULFATE [Concomitant]
  3. VIT B [Concomitant]
  4. COQ10 [Concomitant]
  5. VIT E [Concomitant]
  6. VITA D [Concomitant]
  7. OXYMETAZOLINE HCL [Suspect]
     Indication: MULTIPLE ALLERGIES
     Dosage: BID X 3-4 DAYS
     Dates: start: 20110201, end: 20110225
  8. OXYMETAZOLINE HCL [Suspect]
     Indication: SINUS DISORDER
     Dosage: BID X 3-4 DAYS
     Dates: start: 20110201, end: 20110225
  9. FISH OIL [Concomitant]
  10. VIT C [Concomitant]
  11. CALCIUM CARBONATE [Concomitant]

REACTIONS (5)
  - CHEST PAIN [None]
  - NASAL DISCOMFORT [None]
  - GASTRIC DISORDER [None]
  - SINUS DISORDER [None]
  - PHARYNGEAL DISORDER [None]
